FAERS Safety Report 7256613-5 (Version None)
Quarter: 2011Q1

REPORT INFORMATION
  Report Type: 
  Country: None (occurrence: None)
  Receive Date: 20110129
  Receipt Date: 20100803
  Transmission Date: 20110831
  Serious: No
  Sender: FDA-Public Use
  Company Number: US-ABBOTT-10P-163-0662784-00

PATIENT
  Sex: Female
  Weight: 70.824 kg

DRUGS (7)
  1. TRAMADOL HCL [Concomitant]
     Indication: PAIN
  2. NORTIL 777 [Concomitant]
     Indication: CONTRACEPTION
  3. OXYCODONE [Concomitant]
     Indication: PAIN
     Dosage: 5/325 MG
     Dates: start: 20100501
  4. VICODIN [Concomitant]
     Indication: PAIN
     Dosage: 5/500 MG
  5. HUMIRA [Suspect]
     Route: 058
     Dates: start: 20100601, end: 20100601
  6. HUMIRA [Suspect]
     Route: 058
     Dates: start: 20100701
  7. HUMIRA [Suspect]
     Indication: CROHN'S DISEASE
     Route: 058
     Dates: start: 20100601, end: 20100601

REACTIONS (1)
  - FATIGUE [None]
